FAERS Safety Report 5005560-8 (Version None)
Quarter: 2006Q2

REPORT INFORMATION
  Report Type: 
  Country: None (occurrence: None)
  Receive Date: 20060515
  Receipt Date: 20060425
  Transmission Date: 20061013
  Serious: Yes (Disabling)
  Sender: FDA-Public Use
  Company Number: 29881

PATIENT
  Age: 41 Year
  Sex: Male

DRUGS (5)
  1. ATROPINE [Suspect]
     Indication: REFRACTION DISORDER
     Dosage: OPHT
     Route: 047
     Dates: start: 20041113, end: 20041116
  2. ATROPINE [Suspect]
     Indication: THERAPEUTIC PROCEDURE
     Dosage: OPHT
     Route: 047
     Dates: start: 20041113, end: 20041116
  3. ATROPINE [Suspect]
     Indication: UVEITIS
     Dosage: OPHT
     Route: 047
     Dates: start: 20041113, end: 20041116
  4. TOBRAMYCIN + DEXAMETHASONE [Concomitant]
  5. DEXAMETHASONE/OXYTETRACYCLINE [Concomitant]

REACTIONS (6)
  - ABNORMAL SENSATION IN EYE [None]
  - HEADACHE [None]
  - LOSS OF EMPLOYMENT [None]
  - MYDRIASIS [None]
  - PHOTOPHOBIA [None]
  - VISUAL FIELD DEFECT [None]
